FAERS Safety Report 4366229-6 (Version None)
Quarter: 2004Q2

REPORT INFORMATION
  Report Type: 
  Country: None (occurrence: None)
  Receive Date: 20040527
  Receipt Date: 20040427
  Transmission Date: 20050107
  Serious: No
  Sender: FDA-Public Use
  Company Number: US-BRISTOL-MYERS SQUIBB COMPANY-12573101

PATIENT
  Age: 39 Year
  Sex: Female

DRUGS (1)
  1. DEFINITY [Suspect]
     Route: 040
     Dates: start: 20040426, end: 20040426

REACTIONS (5)
  - BLOOD PRESSURE INCREASED [None]
  - DYSGEUSIA [None]
  - DYSPNOEA [None]
  - HYPERHIDROSIS [None]
  - TACHYCARDIA [None]
